FAERS Safety Report 21392016 (Version 1)
Quarter: 2022Q3

REPORT INFORMATION
  Report Type: Spontaneous
  Country: US (occurrence: None)
  Receive Date: 20220928
  Receipt Date: 20220928
  Transmission Date: 20221026
  Serious: Yes (Hospitalization)
  Sender: FDA-Public Use
  Company Number: None

PATIENT
  Age: 81 Year
  Sex: Male
  Weight: 90.26 kg

DRUGS (1)
  1. EMPAGLIFLOZIN [Suspect]
     Active Substance: EMPAGLIFLOZIN
     Indication: Diabetes mellitus
     Dosage: FREQUENCY : DAILY;?
     Route: 048
     Dates: start: 20211227, end: 20220222

REACTIONS (5)
  - Fatigue [None]
  - Acute kidney injury [None]
  - Hyperkalaemia [None]
  - Dehydration [None]
  - Tubulointerstitial nephritis [None]

NARRATIVE: CASE EVENT DATE: 20220215
